FAERS Safety Report 7434479-8 (Version None)
Quarter: 2011Q2

REPORT INFORMATION
  Report Type: 
  Country: None (occurrence: None)
  Receive Date: 20110425
  Receipt Date: 20110419
  Transmission Date: 20111010
  Serious: No
  Sender: FDA-Public Use
  Company Number: US-B.I. PHARMACEUTICALS,INC./RIDGEFIELD-2011-BP-03123BP

PATIENT
  Sex: Male
  Weight: 86.2 kg

DRUGS (3)
  1. FLOVENT [Concomitant]
     Route: 055
     Dates: start: 20101002
  2. PRADAXA [Suspect]
     Indication: ATRIAL FIBRILLATION
     Dosage: 300 MG
     Route: 048
     Dates: start: 20110112, end: 20110112
  3. METOPROLOL [Concomitant]
     Dates: start: 20081009

REACTIONS (3)
  - ADVERSE REACTION [None]
  - EYE HAEMORRHAGE [None]
  - GASTROINTESTINAL PAIN [None]
